FAERS Safety Report 4438967-8 (Version None)
Quarter: 2004Q3

REPORT INFORMATION
  Report Type: 
  Country: None (occurrence: None)
  Receive Date: 20040830
  Receipt Date: 20040816
  Transmission Date: 20050211
  Serious: Yes (Hospitalization)
  Sender: FDA-Public Use
  Company Number: 2004056975

PATIENT
  Age: 26 Year
  Sex: Male

DRUGS (1)
  1. ZIPRASIDONE (IM) (ZIPRASIDONE) [Suspect]
     Indication: AGGRESSION
     Dosage: 40 MG (20 MG), INTRAMUSCULAR
     Route: 030

REACTIONS (3)
  - AGGRESSION [None]
  - AGITATION [None]
  - DRUG INEFFECTIVE [None]
